FAERS Safety Report 19171198 (Version 6)
Quarter: 2022Q3

REPORT INFORMATION
  Report Type: Report from Study
  Country: JP (occurrence: JP)
  Receive Date: 20210422
  Receipt Date: 20220706
  Transmission Date: 20221027
  Serious: Yes (Hospitalization)
  Sender: FDA-Public Use
  Company Number: JP-ABBVIE-21K-087-3868521-00

PATIENT
  Age: 84 Year
  Sex: Male
  Weight: 57 kg

DRUGS (8)
  1. RINVOQ [Suspect]
     Active Substance: UPADACITINIB
     Indication: Rheumatoid arthritis
     Route: 048
     Dates: start: 20210205, end: 20210418
  2. RINVOQ [Suspect]
     Active Substance: UPADACITINIB
     Indication: Rheumatic disorder
  3. AZULFIDINE [Suspect]
     Active Substance: SULFASALAZINE
     Indication: Rheumatoid arthritis
     Route: 065
     Dates: end: 20210420
  4. IGURATIMOD [Suspect]
     Active Substance: IGURATIMOD
     Indication: Rheumatoid arthritis
     Route: 065
     Dates: end: 20210420
  5. ISONIAZID [Concomitant]
     Active Substance: ISONIAZID
     Indication: Product used for unknown indication
     Route: 048
     Dates: start: 20210205, end: 20210420
  6. LOXOPROFEN SODIUM DIHYDRATE [Concomitant]
     Active Substance: LOXOPROFEN SODIUM DIHYDRATE
     Indication: Rheumatoid arthritis
     Route: 065
  7. REBAMIPIDE [Concomitant]
     Active Substance: REBAMIPIDE
     Indication: Product used for unknown indication
     Route: 048
  8. PREGABALIN [Concomitant]
     Active Substance: PREGABALIN
     Indication: Product used for unknown indication
     Route: 048
     Dates: start: 20210420

REACTIONS (3)
  - Red blood cell count decreased [Recovering/Resolving]
  - Platelet count decreased [Recovering/Resolving]
  - Pneumonia bacterial [Recovered/Resolved]

NARRATIVE: CASE EVENT DATE: 20210414
